FAERS Safety Report 11790024 (Version 1)
Quarter: 2015Q4

REPORT INFORMATION
  Report Type: Spontaneous
  Country: EG (occurrence: EG)
  Receive Date: 20151201
  Receipt Date: 20151201
  Transmission Date: 20160305
  Serious: Yes (Hospitalization)
  Sender: FDA-Public Use
  Company Number: EG-EAGLE PHARMACEUTICALS, INC.-ELL201511-000266

PATIENT
  Age: 2 Year
  Sex: Female

DRUGS (3)
  1. SULTAMICILLIN [Suspect]
     Active Substance: SULTAMICILLIN
     Indication: UPPER RESPIRATORY TRACT INFECTION
  2. DICLOFENAC SODIUM AND MISOPROSTOL [Suspect]
     Active Substance: DICLOFENAC SODIUM\MISOPROSTOL
     Indication: UPPER RESPIRATORY TRACT INFECTION
  3. CEFOPERAZONE [Suspect]
     Active Substance: CEFOPERAZONE
     Indication: UPPER RESPIRATORY TRACT INFECTION

REACTIONS (1)
  - Drug reaction with eosinophilia and systemic symptoms [Recovering/Resolving]
